FAERS Safety Report 12746558 (Version 1)
Quarter: 2016Q3

REPORT INFORMATION
  Report Type: Spontaneous
  Country: US (occurrence: US)
  Receive Date: 20160915
  Receipt Date: 20160915
  Transmission Date: 20161109
  Serious: Yes (Other)
  Sender: FDA-Public Use
  Company Number: None

PATIENT
  Age: 27 Year
  Sex: Female
  Weight: 59.4 kg

DRUGS (6)
  1. FLONASE [Concomitant]
     Active Substance: FLUTICASONE PROPIONATE
  2. LORATIDINE [Concomitant]
     Active Substance: LORATADINE
  3. VIORELE [Concomitant]
     Active Substance: DESOGESTREL\ETHINYL ESTRADIOL
  4. HYDROXYZINE [Concomitant]
     Active Substance: HYDROXYZINE\HYDROXYZINE HYDROCHLORIDE
  5. ESCITALOPRAM [Suspect]
     Active Substance: ESCITALOPRAM OXALATE
     Indication: ANXIETY
     Dosage: 1 TABLET ORAL
     Route: 048
     Dates: start: 20160805, end: 20160915
  6. CALCIUM [Concomitant]
     Active Substance: CALCIUM

REACTIONS (5)
  - Insomnia [None]
  - Haemorrhage [None]
  - Constipation [None]
  - Haemorrhoids [None]
  - Anal fissure [None]

NARRATIVE: CASE EVENT DATE: 20160805
